FAERS Safety Report 7757007-6 (Version None)
Quarter: 2011Q3

REPORT INFORMATION
  Report Type: 
  Country: None (occurrence: None)
  Receive Date: 20110916
  Receipt Date: 20110916
  Transmission Date: 20111222
  Serious: Yes (Life-Threatening, Hospitalization, Disabling, Other)
  Sender: FDA-Public Use
  Company Number: None

PATIENT
  Age: 84 Year
  Sex: Female
  Weight: 57.152 kg

DRUGS (6)
  1. SPRINOLACTONE [Concomitant]
  2. DRONEDRAONE [Concomitant]
  3. PRADAXA [Suspect]
     Indication: ATRIAL FIBRILLATION
     Dosage: 150 MG
     Route: 002
     Dates: start: 20110703, end: 20110719
  4. METOPROLOL TARTRATE [Concomitant]
  5. LISINOPRIL [Concomitant]
  6. FLUDROCORTISONE ACETATE [Concomitant]

REACTIONS (6)
  - HYPERKALAEMIA [None]
  - ANAEMIA [None]
  - DIARRHOEA HAEMORRHAGIC [None]
  - HAEMATOCHEZIA [None]
  - ARRHYTHMIA [None]
  - RENAL FAILURE ACUTE [None]
